FAERS Safety Report 6734328-7 (Version None)
Quarter: 2010Q2

REPORT INFORMATION
  Report Type: 
  Country: None (occurrence: None)
  Receive Date: 20100520
  Receipt Date: 20100517
  Transmission Date: 20101027
  Serious: Yes (Death, Disabling)
  Sender: FDA-Public Use
  Company Number: GB-ELI_LILLY_AND_COMPANY-GB201002004957

PATIENT
  Sex: Male

DRUGS (6)
  1. ALIMTA [Suspect]
     Indication: NEOPLASM MALIGNANT
     Dosage: 800 MG, UNKNOWN
     Route: 042
     Dates: start: 20100118
  2. DEXAMETHASONE [Concomitant]
     Dosage: UNK, UNKNOWN
     Route: 065
  3. SERETIDE [Concomitant]
     Dosage: 125 MG, UNK
  4. SALBUTAMOL [Concomitant]
     Dosage: 250 UG, UNK
  5. DOMPERIDONE [Concomitant]
     Dosage: 10 MG, UNK
  6. DIAMORPHINE [Concomitant]
     Dates: start: 20100207, end: 20100209

REACTIONS (5)
  - CACHEXIA [None]
  - DIARRHOEA [None]
  - EPISTAXIS [None]
  - MELAENA [None]
  - MOUTH HAEMORRHAGE [None]
